FAERS Safety Report 6279724-X (Version None)
Quarter: 2009Q3

REPORT INFORMATION
  Report Type: 
  Country: None (occurrence: None)
  Receive Date: 20090723
  Receipt Date: 20070427
  Transmission Date: 20100115
  Serious: Yes (Other)
  Sender: FDA-Public Use
  Company Number: US-ASTRAZENECA-2006UW23810

PATIENT
  Age: 11413 Day
  Sex: Female
  Weight: 124.3 kg

DRUGS (24)
  1. SEROQUEL [Suspect]
     Indication: MENTAL DISORDER
     Dosage: 25-200 MG
     Route: 048
     Dates: start: 20011015, end: 20030910
  2. ABILIFY [Concomitant]
  3. GEODON [Concomitant]
  4. HALDOL [Concomitant]
  5. RISPERDAL [Concomitant]
  6. THORAZINE [Concomitant]
  7. ZYPREXA [Concomitant]
  8. REMERON [Concomitant]
     Route: 048
     Dates: start: 20010829
  9. PAXIL [Concomitant]
     Dosage: 30-40 MG
     Route: 048
     Dates: start: 20010829
  10. FLUVOXAMINE MALEATE [Concomitant]
     Route: 048
     Dates: start: 20010829
  11. PHENYTOIN SODIUM [Concomitant]
     Route: 048
     Dates: start: 20010927
  12. NEURONTIN [Concomitant]
     Dosage: 300-600 MG
     Route: 048
     Dates: start: 20011114
  13. ALBUTEROL [Concomitant]
     Dosage: 90 MCG
     Route: 048
     Dates: start: 20011114
  14. HYDROXYZINE [Concomitant]
     Route: 048
     Dates: start: 20011205
  15. DIFLUCAN [Concomitant]
     Route: 048
     Dates: start: 20020115
  16. ZESTRIL [Concomitant]
     Dosage: 5-40 MG
     Route: 048
     Dates: start: 20020118
  17. SONATA [Concomitant]
     Route: 048
     Dates: start: 20010821
  18. CYTOMEL [Concomitant]
     Dosage: 50 MCG
     Route: 048
     Dates: start: 20020202
  19. NORVASC [Concomitant]
     Route: 048
     Dates: start: 20020202
  20. THIOTHIXENE [Concomitant]
     Route: 048
     Dates: start: 20020207
  21. ZOLOFT [Concomitant]
     Dosage: 50-100 MG
     Route: 048
     Dates: start: 20020822
  22. LIPITOR [Concomitant]
     Route: 048
     Dates: start: 20020828
  23. GLUCOPHAGE XR [Concomitant]
     Route: 048
     Dates: start: 20020416
  24. TEGRETOL-XR [Concomitant]
     Route: 048
     Dates: start: 20020705

REACTIONS (5)
  - DIABETES MELLITUS [None]
  - DIABETES MELLITUS INADEQUATE CONTROL [None]
  - DIABETIC NEUROPATHY [None]
  - DIABETIC RETINOPATHY [None]
  - TYPE 2 DIABETES MELLITUS [None]
